FAERS Safety Report 10169171 (Version 1)
Quarter: 2014Q2

REPORT INFORMATION
  Report Type: Spontaneous
  Country: US (occurrence: US)
  Receive Date: 20140513
  Receipt Date: 20140513
  Transmission Date: 20141212
  Serious: No
  Sender: FDA-Public Use
  Company Number: US-TARO-2014P1003054

PATIENT
  Age: 4 Year
  Sex: Male
  Weight: 14.06 kg

DRUGS (3)
  1. CETIRIZINE HCL CHILDREN ORAL SOLUTION ALLERGY 1MG/ML (SUGARFREE GRAPE) [Suspect]
     Route: 048
     Dates: start: 201403
  2. VISINE ALLERGY DROPS [Concomitant]
  3. ALBUTEROL NEBULIZER [Concomitant]

REACTIONS (3)
  - Drug ineffective [Recovered/Resolved]
  - Overdose [Unknown]
  - Middle insomnia [Recovered/Resolved]
